FAERS Safety Report 10182594 (Version 1)
Quarter: 2014Q2

REPORT INFORMATION
  Report Type: Spontaneous
  Country: US (occurrence: None)
  Receive Date: 20140519
  Receipt Date: 20140519
  Transmission Date: 20141212
  Serious: Yes (Other)
  Sender: FDA-Public Use
  Company Number: None

PATIENT
  Age: 29 Year
  Sex: Male
  Weight: 89.36 kg

DRUGS (3)
  1. CLEAR EYES COMPLETE 7 SYMPTOM RELIEF [Suspect]
     Indication: OCULAR HYPERAEMIA
     Dates: start: 20140501
  2. CLEAR EYES COMPLETE 7 SYMPTOM RELIEF [Suspect]
     Indication: EYE PRURITUS
     Dates: start: 20140501
  3. CLEAR EYES COMPLETE 7 SYMPTOM RELIEF [Suspect]
     Indication: DRY EYE
     Dates: start: 20140501

REACTIONS (4)
  - Vision blurred [None]
  - Eye irritation [None]
  - Eye irritation [None]
  - Blindness [None]
